FAERS Safety Report 11455640 (Version 1)
Quarter: 2015Q3

REPORT INFORMATION
  Report Type: Spontaneous
  Country: US (occurrence: US)
  Receive Date: 20150903
  Receipt Date: 20150903
  Transmission Date: 20151125
  Serious: No
  Sender: FDA-Public Use
  Company Number: US-BEH-2014045642

PATIENT
  Age: 61 Year
  Sex: Male
  Weight: 83 kg

DRUGS (33)
  1. ZEMAIRA [Suspect]
     Active Substance: .ALPHA.1-PROTEINASE INHIBITOR HUMAN
     Indication: ALPHA-1 ANTI-TRYPSIN DEFICIENCY
     Route: 042
     Dates: start: 20141006, end: 20141102
  2. LIDOCAINE/PRILOCAINE [Concomitant]
  3. AUGMENTIN [Concomitant]
     Active Substance: AMOXICILLIN\CLAVULANATE POTASSIUM
  4. PRAVASTATIN [Concomitant]
     Active Substance: PRAVASTATIN\PRAVASTATIN SODIUM
  5. MECLIZINE [Concomitant]
     Active Substance: MECLIZINE\MECLIZINE HYDROCHLORIDE
  6. LOSARTAN POTASSIUM. [Concomitant]
     Active Substance: LOSARTAN POTASSIUM
  7. METOPROLOL SUCC ER [Concomitant]
     Active Substance: METOPROLOL SUCCINATE
  8. SODIUM CHLORIDE. [Concomitant]
     Active Substance: SODIUM CHLORIDE
  9. DALIRESP [Concomitant]
     Active Substance: ROFLUMILAST
  10. HYDROCODON-ACETAMINOPHEN [Concomitant]
     Active Substance: ACETAMINOPHEN\HYDROCODONE
  11. PREDNISONE. [Concomitant]
     Active Substance: PREDNISONE
  12. VENTOLIN [Concomitant]
     Active Substance: ALBUTEROL SULFATE
  13. IPRATROPIUM BR [Concomitant]
  14. THEOPHYLLINE ER [Concomitant]
     Active Substance: THEOPHYLLINE ANHYDROUS
  15. ASPIRIN. [Concomitant]
     Active Substance: ASPIRIN
  16. CHERATUSSIN AC [Concomitant]
     Active Substance: CODEINE PHOSPHATE\GUAIFENESIN
  17. LORAZEPAM. [Concomitant]
     Active Substance: LORAZEPAM
  18. NITROGLYCERIN. [Concomitant]
     Active Substance: NITROGLYCERIN
  19. ZEMAIRA [Suspect]
     Active Substance: .ALPHA.1-PROTEINASE INHIBITOR HUMAN
     Indication: CHRONIC OBSTRUCTIVE PULMONARY DISEASE
     Route: 042
     Dates: start: 20141006, end: 20141102
  20. HEPARIN [Concomitant]
     Active Substance: HEPARIN SODIUM
  21. FLOVENT [Concomitant]
     Active Substance: FLUTICASONE PROPIONATE
  22. BACTRIM DS [Concomitant]
     Active Substance: SULFAMETHOXAZOLE\TRIMETHOPRIM
  23. OXYGEN. [Concomitant]
     Active Substance: OXYGEN
  24. LEVOTHYROXINE. [Concomitant]
     Active Substance: LEVOTHYROXINE
  25. DIPHENHYDRAMINE. [Concomitant]
     Active Substance: DIPHENHYDRAMINE
  26. EPIPEN [Concomitant]
     Active Substance: EPINEPHRINE
  27. NASONEX [Concomitant]
     Active Substance: MOMETASONE FUROATE
  28. LIPITOR [Concomitant]
     Active Substance: ATORVASTATIN CALCIUM
  29. HYOSCYAMINE SULF [Concomitant]
  30. PENTASA [Concomitant]
     Active Substance: MESALAMINE
  31. MEDROL [Concomitant]
     Active Substance: METHYLPREDNISOLONE
  32. ZEMAIRA [Suspect]
     Active Substance: .ALPHA.1-PROTEINASE INHIBITOR HUMAN
     Indication: CHRONIC OBSTRUCTIVE PULMONARY DISEASE
     Route: 042
     Dates: start: 20141006, end: 20141102
  33. VITAMIN B12 [Concomitant]
     Active Substance: CYANOCOBALAMIN

REACTIONS (2)
  - Nausea [Unknown]
  - Vomiting [Unknown]

NARRATIVE: CASE EVENT DATE: 20141006
